FAERS Safety Report 7583441-3 (Version None)
Quarter: 2011Q2

REPORT INFORMATION
  Report Type: 
  Country: None (occurrence: None)
  Receive Date: 20110623
  Receipt Date: 20110613
  Transmission Date: 20111010
  Serious: Yes (Life-Threatening)
  Sender: FDA-Public Use
  Company Number: FK201101175

PATIENT
  Age: 53 Year
  Sex: Male

DRUGS (4)
  1. XYLOCAINE W/ EPINEPHRENE [Suspect]
     Indication: NERVE BLOCK
     Dosage: 1.5%, 1:200,000
  2. OMEPRAZOLE [Concomitant]
  3. PANTOPRAZOLE [Concomitant]
  4. MARCAINE [Suspect]
     Indication: NERVE BLOCK
     Dosage: INSTALLED USING STANDARD

REACTIONS (4)
  - CARDIOGENIC SHOCK [None]
  - VENTRICULAR TACHYCARDIA [None]
  - VENTRICULAR FIBRILLATION [None]
  - PULMONARY OEDEMA [None]
